FAERS Safety Report 4458609-5 (Version None)
Quarter: 2004Q3

REPORT INFORMATION
  Report Type: 
  Country: None (occurrence: None)
  Receive Date: 20040917
  Receipt Date: 20030806
  Transmission Date: 20050211
  Serious: Yes (Other)
  Sender: FDA-Public Use
  Company Number: US-JNJFOC-20030801934

PATIENT
  Age: 42 Year
  Sex: Female

DRUGS (4)
  1. TOPAMAX [Suspect]
     Indication: MIGRAINE
     Dosage: 12.5 MG ; 25 MG : IN 1 DAY,ORAL
     Route: 048
     Dates: start: 20030701
  2. TOPAMAX [Suspect]
     Indication: MIGRAINE
     Dosage: 12.5 MG ; 25 MG : IN 1 DAY,ORAL
     Route: 048
     Dates: start: 20030723
  3. RHINOCORT [Concomitant]
  4. GUAIFENESIN ( ) GUAIFENESIN [Concomitant]

REACTIONS (2)
  - ANGLE CLOSURE GLAUCOMA [None]
  - MYOPIA [None]
